FAERS Safety Report 7323285-0 (Version None)
Quarter: 2011Q1

REPORT INFORMATION
  Report Type: 
  Country: None (occurrence: None)
  Receive Date: 20110301
  Receipt Date: 20110222
  Transmission Date: 20110831
  Serious: Yes (Other)
  Sender: FDA-Public Use
  Company Number: JP-SP-2011-00852

PATIENT
  Age: 86 Year
  Sex: Male

DRUGS (1)
  1. IMMUCYST [Suspect]
     Indication: BLADDER CANCER
     Route: 043
     Dates: start: 20110208, end: 20110215

REACTIONS (3)
  - REITER'S SYNDROME [None]
  - INFLAMMATION [None]
  - UVEITIS [None]
